FAERS Safety Report 5125240-8 (Version None)
Quarter: 2006Q4

REPORT INFORMATION
  Report Type: 
  Country: None (occurrence: None)
  Receive Date: 20061010
  Receipt Date: 20061010
  Transmission Date: 20070319
  Serious: Yes (Hospitalization)
  Sender: FDA-Public Use
  Company Number: None

PATIENT
  Age: 81 Year
  Sex: Male

DRUGS (7)
  1. NPH INSULIN [Suspect]
     Indication: DIABETES MELLITUS INSULIN-DEPENDENT
     Dosage: 20 UNITS Q AM 10 UNITS QPM
     Dates: start: 20060801
  2. SYNTHROID [Concomitant]
  3. VIORASE [Concomitant]
  4. CYPROHEPTADINE HCL [Concomitant]
  5. VITAMIN D [Concomitant]
  6. LORTAB [Concomitant]
  7. FERROUS SULFATE TAB [Concomitant]

REACTIONS (1)
  - LOSS OF CONSCIOUSNESS [None]
